FAERS Safety Report 15632875 (Version 1)
Quarter: 2018Q4

REPORT INFORMATION
  Report Type: Spontaneous
  Country: US (occurrence: US)
  Receive Date: 20181119
  Receipt Date: 20181119
  Transmission Date: 20190205
  Serious: Yes (Death, Other)
  Sender: FDA-Public Use
  Company Number: US-JNJFOC-20181122038

PATIENT

DRUGS (1)
  1. XARELTO [Suspect]
     Active Substance: RIVAROXABAN
     Indication: PRODUCT USED FOR UNKNOWN INDICATION
     Route: 048
     Dates: start: 20160617, end: 20161121

REACTIONS (3)
  - Death [Fatal]
  - Retroperitoneal haemorrhage [Unknown]
  - Aortic aneurysm rupture [Unknown]

NARRATIVE: CASE EVENT DATE: 20161121
